FAERS Safety Report 13467574 (Version 1)
Quarter: 2017Q2

REPORT INFORMATION
  Report Type: Spontaneous
  Country: US (occurrence: US)
  Receive Date: 20170421
  Receipt Date: 20170421
  Transmission Date: 20170830
  Serious: No
  Sender: FDA-Public Use
  Company Number: US-PFIZER INC-2017175398

PATIENT
  Sex: Female

DRUGS (2)
  1. TOVIAZ [Suspect]
     Active Substance: FESOTERODINE FUMARATE
     Dosage: 4 MG, UNK
  2. COUMADIN [Suspect]
     Active Substance: WARFARIN SODIUM
     Dosage: 5 MG, DAILY

REACTIONS (2)
  - Rhinorrhoea [Recovered/Resolved]
  - Dry mouth [Unknown]
